FAERS Safety Report 19545643 (Version 2)
Quarter: 2021Q3

REPORT INFORMATION
  Report Type: Spontaneous
  Country: CA (occurrence: CA)
  Receive Date: 20210714
  Receipt Date: 20210726
  Transmission Date: 20211014
  Serious: Yes (Hospitalization, Other)
  Sender: FDA-Public Use
  Company Number: CA-TEVA-2021-CA-1931616

PATIENT
  Age: 62 Year
  Sex: Male

DRUGS (4)
  1. DICLOFENAC [Suspect]
     Active Substance: DICLOFENAC
     Indication: OSTEOARTHRITIS
     Dosage: 75 MILLIGRAM DAILY; 75 MG ORALLY ONCE DAILY (QD), AS NEEDED (PRN)
     Route: 048
     Dates: start: 2017
  2. CRESTOR [Concomitant]
     Active Substance: ROSUVASTATIN CALCIUM
     Indication: DYSLIPIDAEMIA
     Dates: start: 2008
  3. ACETYLSALICYLIC ACID [Concomitant]
     Active Substance: ASPIRIN
     Indication: PROPHYLAXIS
     Dates: start: 2010
  4. METFORMIN [Concomitant]
     Active Substance: METFORMIN HYDROCHLORIDE
     Indication: TYPE 2 DIABETES MELLITUS
     Dates: start: 200801

REACTIONS (16)
  - Lung opacity [Recovered/Resolved with Sequelae]
  - COVID-19 pneumonia [Recovered/Resolved with Sequelae]
  - Urinary incontinence [Recovered/Resolved with Sequelae]
  - Hypotension [Recovered/Resolved with Sequelae]
  - Urethral injury [Unknown]
  - COVID-19 [Recovered/Resolved with Sequelae]
  - Transaminases increased [Recovered/Resolved with Sequelae]
  - Myocardial strain [Recovered/Resolved with Sequelae]
  - Mental status changes [Recovered/Resolved with Sequelae]
  - Acute respiratory failure [Recovered/Resolved with Sequelae]
  - Musculoskeletal stiffness [Recovered/Resolved with Sequelae]
  - Pulmonary embolism [Recovered/Resolved with Sequelae]
  - Pericarditis [Recovered/Resolved with Sequelae]
  - Thyroid calcification [Recovered/Resolved with Sequelae]
  - Urinary retention [Recovered/Resolved with Sequelae]
  - Unresponsive to stimuli [Recovered/Resolved with Sequelae]

NARRATIVE: CASE EVENT DATE: 20210507
